FAERS Safety Report 5039598-1 (Version None)
Quarter: 2006Q2

REPORT INFORMATION
  Report Type: 
  Country: None (occurrence: None)
  Receive Date: 20060629
  Receipt Date: 20060420
  Transmission Date: 20061013
  Serious: Yes (Hospitalization)
  Sender: FDA-Public Use
  Company Number: GB-ABBOTT-06P-167-0331328-03

PATIENT
  Sex: Female
  Weight: 22.7 kg

DRUGS (10)
  1. HUMIRA [Suspect]
     Indication: RHEUMATOID ARTHRITIS
     Route: 058
     Dates: start: 20040525, end: 20060320
  2. NULYTELY [Concomitant]
     Indication: CONSTIPATION PROPHYLAXIS
     Dates: start: 20060101
  3. SENNA [Concomitant]
     Indication: CONSTIPATION PROPHYLAXIS
     Dates: start: 20060101
  4. METHOTREXATE [Concomitant]
     Indication: RHEUMATOID ARTHRITIS
     Dates: start: 20051019, end: 20060320
  5. FOLIC ACID [Concomitant]
     Indication: VITAMIN SUPPLEMENTATION
     Dates: start: 20051019, end: 20060320
  6. ACETAMINOPHEN W/ CODEINE [Concomitant]
     Indication: PAIN
     Dosage: 1-2 TABLETS 30/500
     Dates: start: 20060101
  7. PREDNISOLONE [Concomitant]
     Indication: RHEUMATOID ARTHRITIS
     Dates: start: 20040819
  8. LEKOVIT CA [Concomitant]
     Indication: OSTEOPOROSIS
     Dates: start: 20020101
  9. ESCITALOPRAM OXALATE [Concomitant]
     Indication: DEPRESSION
     Dates: start: 20040701
  10. COMMERCIAL HUMIRA [Concomitant]
     Indication: RHEUMATOID ARTHRITIS
     Route: 058
     Dates: start: 20031208

REACTIONS (9)
  - CAROTID ARTERY STENOSIS [None]
  - DILATATION VENTRICULAR [None]
  - GASTRITIS [None]
  - HAEMANGIOMA [None]
  - MOBILITY DECREASED [None]
  - ORAL INTAKE REDUCED [None]
  - SCAN ABDOMEN ABNORMAL [None]
  - VOMITING [None]
  - WEIGHT DECREASED [None]
